FAERS Safety Report 6264057-8 (Version None)
Quarter: 2009Q3

REPORT INFORMATION
  Report Type: 
  Country: None (occurrence: None)
  Receive Date: 20090710
  Receipt Date: 20090630
  Transmission Date: 20100115
  Serious: Yes (Life-Threatening, Hospitalization)
  Sender: FDA-Public Use
  Company Number: GR-ROCHE-641501

PATIENT
  Sex: Male
  Weight: 91 kg

DRUGS (2)
  1. PEGASYS [Suspect]
     Indication: HEPATITIS B
     Route: 058
     Dates: start: 20060415, end: 20090617
  2. HEPSERA [Concomitant]
     Indication: HEPATITIS B
     Dates: start: 20070120, end: 20090617

REACTIONS (4)
  - BONE MARROW DISORDER [None]
  - MEGAKARYOCYTES ABNORMAL [None]
  - MYELODYSPLASTIC SYNDROME [None]
  - PLATELET COUNT DECREASED [None]
